FAERS Safety Report 15229623 (Version 1)
Quarter: 2018Q3

REPORT INFORMATION
  Report Type: Spontaneous
  Country: US (occurrence: US)
  Receive Date: 20180802
  Receipt Date: 20180802
  Transmission Date: 20181010
  Serious: Yes (Death, Hospitalization)
  Sender: FDA-Public Use
  Company Number: US-JNJFOC-NSADSS2002033605

PATIENT
  Age: 34 Year
  Sex: Female

DRUGS (4)
  1. IMODIUM [Suspect]
     Active Substance: LOPERAMIDE HYDROCHLORIDE
     Indication: COMPLETED SUICIDE
     Route: 048
  2. IMODIUM [Suspect]
     Active Substance: LOPERAMIDE HYDROCHLORIDE
     Route: 048
  3. GLIPIZIDE. [Suspect]
     Active Substance: GLIPIZIDE
     Indication: COMPLETED SUICIDE
     Route: 048
  4. GEMFIBROZIL. [Suspect]
     Active Substance: GEMFIBROZIL
     Indication: COMPLETED SUICIDE
     Route: 048

REACTIONS (7)
  - Apnoea [Not Recovered/Not Resolved]
  - Cardiac arrest [Fatal]
  - Suicide attempt [Fatal]
  - Ventricular fibrillation [Fatal]
  - Brain oedema [Fatal]
  - Hypotension [Not Recovered/Not Resolved]
  - Hyperglycaemia [Not Recovered/Not Resolved]
